FAERS Safety Report 8003037-9 (Version None)
Quarter: 2011Q4

REPORT INFORMATION
  Report Type: 
  Country: None (occurrence: None)
  Receive Date: 20111222
  Receipt Date: 20111020
  Transmission Date: 20120403
  Serious: No
  Sender: FDA-Public Use
  Company Number: US-GLAXOSMITHKLINE-A0949902A

PATIENT
  Age: 87 Year
  Sex: Male

DRUGS (3)
  1. MULTIPLE MEDICATIONS [Concomitant]
  2. AVODART [Suspect]
     Indication: DYSURIA
     Dosage: 1CAP PER DAY
     Route: 048
     Dates: start: 20091001
  3. FLOMAX [Concomitant]

REACTIONS (1)
  - DRUG INEFFECTIVE [None]
